FAERS Safety Report 19510713 (Version 1)
Quarter: 2021Q3

REPORT INFORMATION
  Report Type: Spontaneous
  Country: JO (occurrence: JO)
  Receive Date: 20210708
  Receipt Date: 20210708
  Transmission Date: 20211014
  Serious: Yes (Other)
  Sender: FDA-Public Use
  Company Number: JO-ORGANON-O2107JOR000313

PATIENT
  Age: 57 Year
  Sex: Female

DRUGS (1)
  1. DESLORATADINE. [Suspect]
     Active Substance: DESLORATADINE
     Indication: RHINITIS ALLERGIC
     Dosage: 5 MG
     Route: 048
     Dates: start: 20210629, end: 20210701

REACTIONS (2)
  - Epigastric discomfort [Recovering/Resolving]
  - Abdominal pain upper [Recovering/Resolving]

NARRATIVE: CASE EVENT DATE: 20210630
